FAERS Safety Report 8132675-8 (Version None)
Quarter: 2012Q1

REPORT INFORMATION
  Report Type: 
  Country: None (occurrence: None)
  Receive Date: 20120213
  Receipt Date: 20120209
  Transmission Date: 20120608
  Serious: Yes (Hospitalization)
  Sender: FDA-Public Use
  Company Number: TR-GLAXOSMITHKLINE-B0780872A

PATIENT
  Sex: Female
  Weight: 79 kg

DRUGS (5)
  1. CEFUROXIME [Suspect]
     Indication: UPPER RESPIRATORY TRACT INFECTION
     Dosage: 1TAB TWICE PER DAY
     Route: 048
     Dates: start: 20120106, end: 20120108
  2. COMPETACT (PIOGLITAZONE + METFORMIN HYDROCHLORIDE) [Concomitant]
  3. DIAMICRON [Concomitant]
     Dosage: 30MG TWICE PER DAY
  4. NAPROSYN [Suspect]
     Indication: UPPER RESPIRATORY TRACT INFECTION
     Dosage: 1TAB TWICE PER DAY
     Route: 048
     Dates: start: 20120106, end: 20120108
  5. LOSARTAN POTASSIUM [Concomitant]
     Dosage: 2TAB PER DAY

REACTIONS (3)
  - RASH [None]
  - URTICARIA [None]
  - ANGIOEDEMA [None]
